FAERS Safety Report 10034385 (Version 1)
Quarter: 2014Q1

REPORT INFORMATION
  Report Type: Spontaneous
  Country: US (occurrence: None)
  Receive Date: 20140324
  Receipt Date: 20140324
  Transmission Date: 20141002
  Serious: Yes (Life-Threatening)
  Sender: FDA-Public Use
  Company Number: None

PATIENT
  Age: 17 Year
  Sex: Female
  Weight: 58 kg

DRUGS (1)
  1. MINOCYCLINE [Suspect]
     Indication: ACNE
     Route: 048
     Dates: start: 20131223, end: 20140221

REACTIONS (16)
  - Drug reaction with eosinophilia and systemic symptoms [None]
  - Urinary tract infection [None]
  - Influenza [None]
  - Viral infection [None]
  - Acute hepatic failure [None]
  - Histiocytosis haematophagic [None]
  - Hyperammonaemia [None]
  - Mental status changes [None]
  - Hepatic encephalopathy [None]
  - Substance-induced psychotic disorder [None]
  - Hypertension [None]
  - Hyponatraemia [None]
  - Inappropriate antidiuretic hormone secretion [None]
  - Pseudohyponatraemia [None]
  - Hypertriglyceridaemia [None]
  - Malaise [None]
